FAERS Safety Report 23816393 (Version 5)
Quarter: 2025Q3

REPORT INFORMATION
  Report Type: Spontaneous
  Country: JP (occurrence: JP)
  Receive Date: 20240503
  Receipt Date: 20250803
  Transmission Date: 20251021
  Serious: Yes (Hospitalization, Other)
  Sender: ALEXION PHARMACEUTICALS
  Company Number: JP-ALXN-202404JPN000799JP

PATIENT
  Age: 23 Year
  Sex: Male
  Weight: 54.6 kg

DRUGS (20)
  1. ULTOMIRIS [Suspect]
     Active Substance: RAVULIZUMAB-CWVZ
     Indication: Atypical haemolytic uraemic syndrome
  2. ULTOMIRIS [Suspect]
     Active Substance: RAVULIZUMAB-CWVZ
  3. PREDONINE [Suspect]
     Active Substance: PREDNISOLONE
     Indication: Systemic lupus erythematosus
  4. PREDONINE [Suspect]
     Active Substance: PREDNISOLONE
  5. MIYA-BM [Concomitant]
     Active Substance: CLOSTRIDIUM BUTYRICUM SPORES STRAIN M-55
  6. ATOVAQUONE [Concomitant]
     Active Substance: ATOVAQUONE
  7. VONOPRAZAN FUMARATE [Concomitant]
     Active Substance: VONOPRAZAN FUMARATE
  8. CELLCEPT [Concomitant]
     Active Substance: MYCOPHENOLATE MOFETIL
  9. ATORVASTATIN CALCIUM TRIHYDRATE [Concomitant]
     Active Substance: ATORVASTATIN CALCIUM TRIHYDRATE
  10. BENLYSTA [Concomitant]
     Active Substance: BELIMUMAB
  11. FEXOFENADINE HYDROCHLORIDE [Concomitant]
     Active Substance: FEXOFENADINE HYDROCHLORIDE
     Indication: Hypersensitivity
  12. FUROSEMIDE [Concomitant]
     Active Substance: FUROSEMIDE
  13. TOLVAPTAN [Concomitant]
     Active Substance: TOLVAPTAN
  14. ALFACALCIDOL [Concomitant]
     Active Substance: ALFACALCIDOL
  15. NIFEDIPINE [Concomitant]
     Active Substance: NIFEDIPINE
  16. MAGNESIUM OXIDE [Concomitant]
     Active Substance: MAGNESIUM OXIDE
  17. FEBUXOSTAT [Concomitant]
     Active Substance: FEBUXOSTAT
  18. DAPRODUSTAT [Concomitant]
     Active Substance: DAPRODUSTAT
  19. OLMESARTAN MEDOXOMIL [Concomitant]
     Active Substance: OLMESARTAN MEDOXOMIL
  20. RITUXAN [Concomitant]
     Active Substance: RITUXIMAB
     Indication: Systemic lupus erythematosus
     Route: 065

REACTIONS (4)
  - Varicella [Unknown]
  - Neutropenia [Recovered/Resolved]
  - Oropharyngeal pain [Unknown]
  - Off label use [Unknown]

NARRATIVE: CASE EVENT DATE: 20240213
